FAERS Safety Report 6755622-X (Version None)
Quarter: 2010Q2

REPORT INFORMATION
  Report Type: 
  Country: None (occurrence: None)
  Receive Date: 20100604
  Receipt Date: 20100531
  Transmission Date: 20101027
  Serious: Yes (Death, Other)
  Sender: FDA-Public Use
  Company Number: PHHY2010DE34639

PATIENT
  Sex: Female
  Weight: 78 kg

DRUGS (6)
  1. ALISKIREN ALI+ [Suspect]
     Indication: HYPERTENSION
     Dosage: 150 MG/DAY
     Dates: start: 20090312
  2. TORSEMIDE [Concomitant]
     Dosage: 10 MG/D
     Dates: start: 20090101
  3. BISOPROLOL [Concomitant]
     Dosage: 2.5 MG/DAY
     Dates: start: 20090101
  4. PANTOPRAZOLE [Concomitant]
     Dosage: 40 MG/D
     Dates: start: 20090928
  5. NULYTELY [Concomitant]
     Dosage: UNK
  6. DIGIMERCK [Concomitant]
     Dosage: 0.05 MG/D
     Dates: start: 20090906

REACTIONS (12)
  - ANGINA PECTORIS [None]
  - BLOOD CREATININE INCREASED [None]
  - CARDIAC FAILURE [None]
  - CORONARY ARTERY DISEASE [None]
  - DYSPEPSIA [None]
  - DYSPNOEA [None]
  - HYPOPROTEINAEMIA [None]
  - METASTASES TO LIVER [None]
  - OEDEMA [None]
  - PLEURAL EFFUSION [None]
  - PNEUMONIA KLEBSIELLA [None]
  - SEPSIS [None]
